FAERS Safety Report 5754399-4 (Version None)
Quarter: 2008Q2

REPORT INFORMATION
  Report Type: 
  Country: None (occurrence: None)
  Receive Date: 20080530
  Receipt Date: 20080521
  Transmission Date: 20081010
  Serious: Yes (Life-Threatening, Hospitalization, Other)
  Sender: FDA-Public Use
  Company Number: US-ABBOTT-08P-163-0452889-00

PATIENT
  Sex: Female

DRUGS (11)
  1. TRICOR [Suspect]
     Indication: DRUG USE FOR UNKNOWN INDICATION
  2. BETASERON [Suspect]
     Indication: MULTIPLE SCLEROSIS
     Dosage: 8 MIU
     Route: 058
     Dates: start: 20001206, end: 20050301
  3. ATORVASTATIN CALCIUM [Suspect]
     Indication: DRUG USE FOR UNKNOWN INDICATION
  4. CHEMOTHERAPEUTICS NOS [Concomitant]
     Indication: DRUG USE FOR UNKNOWN INDICATION
     Dates: end: 20020101
  5. BUPROPION HCL [Concomitant]
     Indication: DRUG USE FOR UNKNOWN INDICATION
  6. VENLAFAXINE HCL [Concomitant]
     Indication: DRUG USE FOR UNKNOWN INDICATION
  7. DULOXETINE HYDROCHLORIDE [Concomitant]
     Indication: DRUG USE FOR UNKNOWN INDICATION
  8. MODAFINIL [Concomitant]
     Indication: DRUG USE FOR UNKNOWN INDICATION
  9. TRAZODONE HCL [Concomitant]
     Indication: DRUG USE FOR UNKNOWN INDICATION
  10. CLONAZEPAM [Concomitant]
     Indication: DRUG USE FOR UNKNOWN INDICATION
  11. NATALIZUMAB [Concomitant]
     Indication: DRUG USE FOR UNKNOWN INDICATION

REACTIONS (15)
  - BLINDNESS [None]
  - BLOOD PRESSURE DECREASED [None]
  - CARDIAC ARREST [None]
  - CHOLELITHIASIS [None]
  - CHRONIC OBSTRUCTIVE PULMONARY DISEASE [None]
  - COLLAPSE OF LUNG [None]
  - FALL [None]
  - INJECTION SITE SCAR [None]
  - JOINT INJURY [None]
  - MUSCULOSKELETAL PAIN [None]
  - ORAL INTAKE REDUCED [None]
  - OVARIAN CYST [None]
  - TENDON DISORDER [None]
  - TREMOR [None]
  - VISUAL FIELD DEFECT [None]
